FAERS Safety Report 5225760-1 (Version None)
Quarter: 2007Q1

REPORT INFORMATION
  Report Type: 
  Country: None (occurrence: None)
  Receive Date: 20070131
  Receipt Date: 20070131
  Transmission Date: 20070707
  Serious: Yes (Other)
  Sender: FDA-Public Use
  Company Number: None

PATIENT
  Age: 37 Year
  Sex: Female
  Weight: 52.1637 kg

DRUGS (1)
  1. IBUPROFEN [Suspect]
     Indication: BACK PAIN
     Dosage: SEE IMAGE
     Route: 048
     Dates: start: 20070129, end: 20070130

REACTIONS (5)
  - AGITATION [None]
  - BRUXISM [None]
  - DISTURBANCE IN ATTENTION [None]
  - IRRITABILITY [None]
  - TINNITUS [None]
